FAERS Safety Report 17289360 (Version 1)
Quarter: 2020Q1

REPORT INFORMATION
  Report Type: Spontaneous
  Country: US (occurrence: US)
  Receive Date: 20200120
  Receipt Date: 20200120
  Transmission Date: 20200409
  Serious: Yes (Other)
  Sender: FDA-Public Use
  Company Number: US-BAYER-2020-008102

PATIENT
  Sex: Female

DRUGS (1)
  1. ALKA-SELTZER PLUS COLD AND COUGH FORMULA [Suspect]
     Active Substance: ACETAMINOPHEN\CHLORPHENIRAMINE\DEXTROMETHORPHAN\PHENYLEPHRINE
     Dosage: UNK
     Dates: end: 2019

REACTIONS (1)
  - Choking [Recovered/Resolved]

NARRATIVE: CASE EVENT DATE: 2019
